FAERS Safety Report 4855952-2 (Version None)
Quarter: 2005Q4

REPORT INFORMATION
  Report Type: 
  Country: None (occurrence: None)
  Receive Date: 20051214
  Receipt Date: 20051206
  Transmission Date: 20060501
  Serious: Yes (Other)
  Sender: FDA-Public Use
  Company Number: US-2005-014486

PATIENT
  Age: 47 Year
  Sex: Female

DRUGS (1)
  1. MIRENA [Suspect]
     Indication: CONTRACEPTION
     Dosage: 20 ?G/DAY, CONT, INTRA-UTERINE
     Route: 015
     Dates: start: 20050614, end: 20050616

REACTIONS (7)
  - ANXIETY [None]
  - ASTHENIA [None]
  - DEVICE MALFUNCTION [None]
  - DIARRHOEA [None]
  - DIFFICULTY IN WALKING [None]
  - INCORRECT DOSE ADMINISTERED [None]
  - SYNCOPE VASOVAGAL [None]
